FAERS Safety Report 8888197 (Version 1)
Quarter: 2012Q4

REPORT INFORMATION
  Report Type: 
  Country: US (occurrence: US)
  Receive Date: 20121106
  Receipt Date: 20121106
  Transmission Date: 20130627
  Serious: Yes (Hospitalization)
  Sender: FDA-Public Use
  Company Number: US-ACTELION-A-US2012-73455

PATIENT
  Age: 89 Year
  Sex: Female
  Weight: 76.19 kg

DRUGS (8)
  1. VENTAVIS [Suspect]
     Indication: PULMONARY ARTERIAL HYPERTENSION
     Dosage: UNK 4-6 x/ day
     Route: 055
     Dates: start: 20110102, end: 20121012
  2. TRACLEER [Suspect]
     Indication: PULMONARY ARTERIAL HYPERTENSION
     Dosage: 125 mg, bid
     Route: 048
  3. COUMADIN [Suspect]
  4. ASPIRIN [Suspect]
  5. DIGOXIN [Concomitant]
  6. SILDENAFIL [Concomitant]
  7. HYDRALAZINE [Concomitant]
  8. FUROSEMIDE [Concomitant]

REACTIONS (12)
  - Gastrointestinal haemorrhage [Recovering/Resolving]
  - Anaemia [Recovering/Resolving]
  - Dizziness [Recovering/Resolving]
  - Presyncope [Recovering/Resolving]
  - Haematocrit decreased [Recovering/Resolving]
  - Melaena [Recovering/Resolving]
  - Packed red blood cell transfusion [Recovering/Resolving]
  - Haemoglobin decreased [Recovering/Resolving]
  - Hypotension [Recovering/Resolving]
  - Fatigue [Recovering/Resolving]
  - Headache [Unknown]
  - Syncope [Recovering/Resolving]
